FAERS Safety Report 10194965 (Version 4)
Quarter: 2014Q3

REPORT INFORMATION
  Report Type: Spontaneous
  Country: US (occurrence: US)
  Receive Date: 20140526
  Receipt Date: 20140724
  Transmission Date: 20150326
  Serious: No
  Sender: FDA-Public Use
  Company Number: US-PFIZER INC-2014138162

PATIENT
  Sex: Female

DRUGS (3)
  1. LORAZEPAM. [Concomitant]
     Active Substance: LORAZEPAM
     Dosage: 0.5 MG, AS NEEDED
  2. SUTENT [Suspect]
     Active Substance: SUNITINIB MALATE
     Indication: GASTROINTESTINAL STROMAL TUMOUR
     Dosage: 37.5 MG, DAILY
  3. LEXAPRO [Concomitant]
     Active Substance: ESCITALOPRAM OXALATE
     Dosage: 5 MG, DAILY

REACTIONS (8)
  - Breast enlargement [Unknown]
  - Hot flush [Not Recovered/Not Resolved]
  - Hair colour changes [Not Recovered/Not Resolved]
  - Eyelash discolouration [Unknown]
  - Hyperhidrosis [Unknown]
  - Weight increased [Unknown]
  - Breast tenderness [Not Recovered/Not Resolved]
  - Hyperkeratosis [Unknown]
